FAERS Safety Report 7734947-5 (Version None)
Quarter: 2011Q3

REPORT INFORMATION
  Report Type: 
  Country: None (occurrence: None)
  Receive Date: 20110907
  Receipt Date: 20110902
  Transmission Date: 20111222
  Serious: Yes (Other)
  Sender: FDA-Public Use
  Company Number: PHHY2011JP78747

PATIENT
  Sex: Female

DRUGS (5)
  1. DICLOFENAC SODIUM [Suspect]
     Indication: RHEUMATOID ARTHRITIS
     Dosage: 75 MG, DAILY
     Route: 048
  2. PREDNISOLONE [Concomitant]
     Dosage: 15 MG, UNK
     Route: 048
  3. TEPRENONE [Concomitant]
     Dosage: 150 MG, UNK
     Route: 048
  4. METHOTREXATE [Concomitant]
     Dosage: 4 MG, UNK
     Route: 048
  5. RABEPRAZOLE SODIUM [Concomitant]
     Dosage: 10 MG, UNK
     Route: 048

REACTIONS (2)
  - SMALL INTESTINAL STENOSIS [None]
  - SMALL INTESTINE ULCER [None]
